FAERS Safety Report 4865860-9 (Version None)
Quarter: 2005Q4

REPORT INFORMATION
  Report Type: 
  Country: None (occurrence: None)
  Receive Date: 20051220
  Receipt Date: 20051208
  Transmission Date: 20060501
  Serious: Yes (Disabling)
  Sender: FDA-Public Use
  Company Number: 2005155572

PATIENT
  Age: 61 Year
  Sex: Female
  Weight: 81.6475 kg

DRUGS (2)
  1. DELTACORTRIL [Suspect]
     Indication: POLYMYALGIA RHEUMATICA
     Dosage: (10 MG); (5 MG)
     Dates: start: 20051031
  2. DELTACORTRIL [Suspect]
     Indication: POLYMYALGIA RHEUMATICA
     Dosage: (10 MG); (5 MG)
     Dates: start: 20051101

REACTIONS (6)
  - ANOREXIA [None]
  - ARRHYTHMIA [None]
  - FEELING ABNORMAL [None]
  - HOT FLUSH [None]
  - HYPERHIDROSIS [None]
  - NAUSEA [None]
